FAERS Safety Report 14361333 (Version 1)
Quarter: 2018Q1

REPORT INFORMATION
  Report Type: Spontaneous
  Country: BR (occurrence: BR)
  Receive Date: 20180108
  Receipt Date: 20180108
  Transmission Date: 20180509
  Serious: Yes (Other)
  Sender: FDA-Public Use
  Company Number: BR-ABBVIE-18P-020-2213510-00

PATIENT
  Sex: Female
  Weight: 84 kg

DRUGS (7)
  1. SULFANATE [Concomitant]
     Indication: EX-TOBACCO USER
     Route: 048
     Dates: start: 2017
  2. DEPAKOTE ER [Suspect]
     Active Substance: DIVALPROEX SODIUM
     Indication: ANXIETY
     Dosage: MORNING/ NIGHT
     Route: 048
     Dates: start: 2017
  3. DEPAKOTE ER [Suspect]
     Active Substance: DIVALPROEX SODIUM
     Indication: BIPOLAR DISORDER
  4. NIQUITIN [Concomitant]
     Active Substance: NICOTINE
     Indication: SMOKING CESSATION THERAPY
     Dosage: REPLACE THE ADHESIVE EVERY 24 HORUS
     Route: 062
  5. BUP (BUPROPION HYDROCHLORIDE) [Concomitant]
     Indication: ANTIDEPRESSANT THERAPY
     Dosage: MORNING/ AFTERNOON
     Route: 048
     Dates: start: 2017
  6. SULFANATE [Concomitant]
     Indication: ANXIETY
  7. DEPAKOTE ER [Suspect]
     Active Substance: DIVALPROEX SODIUM
     Indication: MOOD ALTERED

REACTIONS (3)
  - Inappropriate schedule of drug administration [Unknown]
  - Drug ineffective [Not Recovered/Not Resolved]
  - Cholelithiasis [Unknown]
